FAERS Safety Report 22676674 (Version 6)
Quarter: 2023Q4

REPORT INFORMATION
  Report Type: Report from Study
  Country: IT (occurrence: IT)
  Receive Date: 20230706
  Receipt Date: 20231013
  Transmission Date: 20240110
  Serious: Yes (Hospitalization)
  Sender: FDA-Public Use
  Company Number: IT-SA-SAC20230705000701

PATIENT
  Age: 69 Year
  Sex: Male

DRUGS (25)
  1. ISATUXIMAB [Suspect]
     Active Substance: ISATUXIMAB
     Indication: Plasma cell myeloma
     Dosage: 800 MG
     Route: 065
     Dates: start: 20210628, end: 20210628
  2. ISATUXIMAB [Suspect]
     Active Substance: ISATUXIMAB
     Dosage: 800 MG
     Dates: start: 20230619, end: 20230619
  3. CARFILZOMIB [Suspect]
     Active Substance: CARFILZOMIB
     Indication: Plasma cell myeloma
     Dosage: 112 MG
     Dates: start: 20210628, end: 20210628
  4. CARFILZOMIB [Suspect]
     Active Substance: CARFILZOMIB
     Dosage: 112 MG
     Dates: start: 20230619, end: 20230619
  5. LENALIDOMIDE [Suspect]
     Active Substance: LENALIDOMIDE
     Indication: Plasma cell myeloma
     Dosage: 10 MG
     Dates: start: 20210628, end: 20210628
  6. LENALIDOMIDE [Suspect]
     Active Substance: LENALIDOMIDE
     Dosage: 10 MG
     Dates: start: 20230619, end: 20230619
  7. DEXAMETHASONE [Suspect]
     Active Substance: DEXAMETHASONE
     Indication: Plasma cell myeloma
     Dosage: 20 MG
     Dates: start: 20210628, end: 20210628
  8. DEXAMETHASONE [Suspect]
     Active Substance: DEXAMETHASONE
     Dosage: 20 MG
     Dates: start: 20230619, end: 20230619
  9. LAMIVUDINE [Concomitant]
     Active Substance: LAMIVUDINE
     Dosage: UNK
     Dates: start: 20210628
  10. ACYCLOVIR [Concomitant]
     Active Substance: ACYCLOVIR
     Indication: Prophylaxis
     Dosage: UNK
     Dates: start: 20210628
  11. OMEPRAZOLE [Concomitant]
     Active Substance: OMEPRAZOLE
     Indication: Prophylaxis
     Dosage: UNK
     Dates: start: 20210628
  12. OMEPRAZOLE [Concomitant]
     Active Substance: OMEPRAZOLE
     Indication: Premedication
  13. OMEPRAZOLE [Concomitant]
     Active Substance: OMEPRAZOLE
     Indication: Premedication
  14. AMLODIPINE [Concomitant]
     Active Substance: AMLODIPINE BESYLATE
     Indication: Prophylaxis
     Dosage: UNK
     Dates: start: 20210628
  15. CHOLECALCIFEROL [Concomitant]
     Active Substance: CHOLECALCIFEROL
     Indication: Prophylaxis
     Dosage: UNK
     Dates: start: 20210628
  16. ACETAMINOPHEN [Concomitant]
     Active Substance: ACETAMINOPHEN
     Indication: Prophylaxis
     Dosage: UNK
     Dates: start: 20210628
  17. ACETAMINOPHEN [Concomitant]
     Active Substance: ACETAMINOPHEN
     Indication: Premedication
  18. UNSPECIFIED INGREDIENT [Concomitant]
     Active Substance: UNSPECIFIED INGREDIENT
     Indication: Prophylaxis
     Dosage: UNK
     Dates: start: 20221017
  19. MAGNESIUM [Concomitant]
     Active Substance: MAGNESIUM
     Dosage: UNK
     Dates: start: 20220606
  20. ACETYLCYSTEINE [Concomitant]
     Active Substance: ACETYLCYSTEINE
     Indication: Respiratory symptom
     Dosage: UNK
     Dates: start: 20230320
  21. IBUPROFEN [Concomitant]
     Active Substance: IBUPROFEN
     Indication: Respiratory symptom
     Dosage: UNK
     Dates: start: 20230320
  22. DEXAMETHASONE [Concomitant]
     Active Substance: DEXAMETHASONE
     Indication: Premedication
     Dosage: UNK
     Dates: start: 20210628
  23. CHLORPHENIRAMINE [Concomitant]
     Active Substance: CHLORPHENIRAMINE
     Indication: Premedication
     Dosage: UNK
     Dates: start: 20210628
  24. ZOLEDRONIC ACID [Concomitant]
     Active Substance: ZOLEDRONIC ACID
     Indication: Plasma cell myeloma
     Dosage: UNK
     Dates: start: 20210823
  25. SULFAMETHOXAZOLE AND TRIMETHOPRIM [Concomitant]
     Active Substance: SULFAMETHOXAZOLE\TRIMETHOPRIM
     Indication: Prophylaxis
     Dosage: UNK
     Dates: start: 20211122

REACTIONS (1)
  - Rectal haemorrhage [Recovered/Resolved]

NARRATIVE: CASE EVENT DATE: 20230623
